FAERS Safety Report 7817957-9 (Version None)
Quarter: 2011Q4

REPORT INFORMATION
  Report Type: 
  Country: None (occurrence: None)
  Receive Date: 20111017
  Receipt Date: 20111006
  Transmission Date: 20120403
  Serious: Yes (Hospitalization)
  Sender: FDA-Public Use
  Company Number: IE-GLAXOSMITHKLINE-B0747434B

PATIENT
  Sex: Female
  Weight: 79 kg

DRUGS (3)
  1. CARBOPLATIN [Suspect]
     Indication: BREAST CANCER
     Dosage: 870MG PER DAY
     Route: 042
     Dates: start: 20110822
  2. LAPATINIB [Suspect]
     Indication: BREAST CANCER
     Dosage: 1000MG PER DAY
     Route: 048
     Dates: start: 20110822
  3. DOCETAXEL [Suspect]
     Indication: BREAST CANCER
     Dosage: 136MG PER DAY
     Route: 042
     Dates: start: 20110822

REACTIONS (2)
  - ABSCESS [None]
  - PYREXIA [None]
